FAERS Safety Report 10755233 (Version 1)
Quarter: 2015Q1

REPORT INFORMATION
  Report Type: Spontaneous
  Country: US (occurrence: None)
  Receive Date: 20150130
  Receipt Date: 20150130
  Transmission Date: 20150721
  Serious: Yes (Hospitalization)
  Sender: FDA-Public Use
  Company Number: None

PATIENT
  Age: 47 Year
  Sex: Female
  Weight: 86 kg

DRUGS (1)
  1. METHOTREXATE 25 MG [Suspect]
     Active Substance: METHOTREXATE
     Dates: end: 20150122

REACTIONS (1)
  - Appendicitis [None]

NARRATIVE: CASE EVENT DATE: 20150123
